FAERS Safety Report 4480889-0 (Version None)
Quarter: 2004Q4

REPORT INFORMATION
  Report Type: 
  Country: None (occurrence: None)
  Receive Date: 20040923
  Receipt Date: 20040811
  Transmission Date: 20050328
  Serious: No
  Sender: FDA-Public Use
  Company Number: USA030742780

PATIENT
  Age: 74 Year
  Sex: Female
  Weight: 50 kg

DRUGS (9)
  1. FORTEO [Suspect]
     Indication: OSTEOPOROSIS
     Dosage: 20 UG IN THE MORNING
     Dates: start: 20030725
  2. EVISTA [Suspect]
  3. MULTIVITAMIN [Concomitant]
  4. CALCIUM WITH VITAMIN D [Concomitant]
  5. PREVACID [Concomitant]
  6. VITAMIN E [Concomitant]
  7. ALLEGRA [Concomitant]
  8. PROTONIX [Concomitant]
  9. HERBAL EXTRACTS NOS [Concomitant]

REACTIONS (29)
  - ABDOMINAL PAIN [None]
  - ARTHRALGIA [None]
  - ARTHRITIS [None]
  - ASTHENIA [None]
  - BACK PAIN [None]
  - BONE PAIN [None]
  - BREAST PAIN [None]
  - COUGH [None]
  - DIZZINESS [None]
  - FATIGUE [None]
  - FEAR [None]
  - FEELING ABNORMAL [None]
  - HEADACHE [None]
  - INFLUENZA [None]
  - INJECTION SITE BURNING [None]
  - INJECTION SITE HAEMORRHAGE [None]
  - INJECTION SITE PAIN [None]
  - INJECTION SITE PRURITUS [None]
  - LOOSE STOOLS [None]
  - MUSCLE CRAMP [None]
  - MUSCULOSKELETAL STIFFNESS [None]
  - NASOPHARYNGITIS [None]
  - NEURALGIA [None]
  - PAIN [None]
  - PAIN IN EXTREMITY [None]
  - PHARYNGOLARYNGEAL PAIN [None]
  - SCLEROTHERAPY [None]
  - VARICOSE VEIN [None]
  - VISION BLURRED [None]
